FAERS Safety Report 21919519 (Version 1)
Quarter: 2023Q1

REPORT INFORMATION
  Report Type: Spontaneous
  Country: NO (occurrence: NO)
  Receive Date: 20230127
  Receipt Date: 20230127
  Transmission Date: 20230418
  Serious: Yes (Hospitalization)
  Sender: FDA-Public Use
  Company Number: None

PATIENT
  Age: 38 Year
  Sex: Female
  Weight: 63 kg

DRUGS (4)
  1. BUPROPION HYDROCHLORIDE [Suspect]
     Active Substance: BUPROPION HYDROCHLORIDE
     Indication: Depression
     Dosage: 150 MILLIGRAM DAILY; 150 MG EVERY MORNING
     Dates: start: 20221209, end: 20221215
  2. LAMICTAL [Concomitant]
     Active Substance: LAMOTRIGINE
     Indication: Depression
     Dosage: 400 MILLIGRAM DAILY; TAKES 400 MG DAILY
     Dates: start: 201806
  3. LISDEXAMFETAMINE DIMESYLATE [Concomitant]
     Active Substance: LISDEXAMFETAMINE DIMESYLATE
     Indication: Attention deficit hyperactivity disorder
     Dosage: 50 MILLIGRAM DAILY; TOOK 50 MG EVERY MORNING. NOW PAUSED., CAP 50 MG
     Dates: start: 202206, end: 20221215
  4. ESOMEPRAZOLE [Concomitant]
     Active Substance: ESOMEPRAZOLE
     Indication: Gastrooesophageal reflux disease
     Dosage: 40 MILLIGRAM DAILY; TAKES 40 MG EVERY MORNING ,KRKA ENTEROKAPS

REACTIONS (6)
  - Myoclonus [Recovered/Resolved]
  - Tinnitus [Recovered/Resolved]
  - Tremor [Recovered/Resolved]
  - Muscular weakness [Recovered/Resolved]
  - Dyskinesia [Recovered/Resolved]
  - Dysphemia [Recovered/Resolved]

NARRATIVE: CASE EVENT DATE: 20221211
